FAERS Safety Report 26105074 (Version 1)
Quarter: 2025Q4

REPORT INFORMATION
  Report Type: Spontaneous
  Country: US (occurrence: US)
  Receive Date: 20251130
  Receipt Date: 20251130
  Transmission Date: 20260117
  Serious: No
  Sender: ROCHE
  Company Number: US-ROCHE-10000448540

PATIENT

DRUGS (3)
  1. RITUXIMAB [Suspect]
     Active Substance: RITUXIMAB
     Indication: Follicular lymphoma
     Route: 065
  2. OBINUTUZUMAB [Concomitant]
     Active Substance: OBINUTUZUMAB
     Indication: Follicular lymphoma
     Route: 065
  3. MOSUNETUZUMAB [Concomitant]
     Active Substance: MOSUNETUZUMAB
     Indication: Follicular lymphoma
     Route: 065

REACTIONS (1)
  - Drug resistance [Unknown]
